FAERS Safety Report 7390976-5 (Version None)
Quarter: 2011Q2

REPORT INFORMATION
  Report Type: 
  Country: None (occurrence: None)
  Receive Date: 20110404
  Receipt Date: 20110330
  Transmission Date: 20111010
  Serious: Yes (Other)
  Sender: FDA-Public Use
  Company Number: US-PFIZER INC-2010051613

PATIENT
  Sex: Female
  Weight: 74.9 kg

DRUGS (3)
  1. ADDERALL 10 [Concomitant]
     Dosage: 20 MG, UNK
     Route: 048
  2. PRISTIQ [Suspect]
     Indication: DEPRESSION
     Dosage: 50 MG, 1X/DAY
     Route: 048
     Dates: start: 20091201, end: 20100101
  3. ZOLOFT [Suspect]
     Indication: DEPRESSION
     Dosage: UNK

REACTIONS (4)
  - DRUG INEFFECTIVE [None]
  - WEIGHT INCREASED [None]
  - DEPRESSIVE SYMPTOM [None]
  - ASTHENIA [None]
